FAERS Safety Report 6621998-7 (Version None)
Quarter: 2010Q1

REPORT INFORMATION
  Report Type: 
  Country: None (occurrence: None)
  Receive Date: 20100303
  Receipt Date: 20100218
  Transmission Date: 20100710
  Serious: Yes (Hospitalization)
  Sender: FDA-Public Use
  Company Number: 2010SP010479

PATIENT
  Sex: Female

DRUGS (8)
  1. TEMODAR [Suspect]
     Indication: BREAST CANCER METASTATIC
     Dates: start: 20090129, end: 20090129
  2. IRINOTECAN HCL [Suspect]
     Indication: BREAST CANCER METASTATIC
     Dates: start: 20090129, end: 20090129
  3. FENTANYL-75 [Concomitant]
  4. DILAUDID [Concomitant]
  5. CEFEPIME [Concomitant]
  6. VANCOMYCIN [Concomitant]
  7. FLUCONAZOLE [Concomitant]
  8. NARCAN [Concomitant]

REACTIONS (11)
  - AGITATION [None]
  - ANAEMIA [None]
  - COMMUNICATION DISORDER [None]
  - DYSPHAGIA [None]
  - GASTROINTESTINAL HAEMORRHAGE [None]
  - NEURALGIA [None]
  - PAIN [None]
  - PYREXIA [None]
  - RESPIRATORY RATE DECREASED [None]
  - SOMNOLENCE [None]
  - URINARY TRACT INFECTION FUNGAL [None]
